FAERS Safety Report 6755095-7 (Version None)
Quarter: 2010Q2

REPORT INFORMATION
  Report Type: 
  Country: None (occurrence: None)
  Receive Date: 20100604
  Receipt Date: 20100527
  Transmission Date: 20101027
  Serious: Yes (Death, Hospitalization)
  Sender: FDA-Public Use
  Company Number: US-BIOGENIDEC-2010BI017530

PATIENT
  Sex: Female
  Weight: 39 kg

DRUGS (1)
  1. AVONEX [Suspect]
     Indication: MULTIPLE SCLEROSIS
     Route: 030

REACTIONS (3)
  - INTERVERTEBRAL DISC DEGENERATION [None]
  - LUNG CANCER METASTATIC [None]
  - NECK PAIN [None]
